FAERS Safety Report 19223047 (Version 3)
Quarter: 2021Q4

REPORT INFORMATION
  Report Type: Report from Study
  Country: US (occurrence: US)
  Receive Date: 20210505
  Receipt Date: 20211029
  Transmission Date: 20220303
  Serious: No
  Sender: FDA-Public Use
  Company Number: NVSC2021US101916

PATIENT
  Age: 53 Year
  Sex: Female

DRUGS (2)
  1. ENTRESTO [Suspect]
     Active Substance: SACUBITRIL\VALSARTAN
     Indication: Cardiac failure
     Dosage: 2 DF, BID
     Route: 048
     Dates: start: 202010
  2. SPIRONOLACTONE [Concomitant]
     Active Substance: SPIRONOLACTONE
     Indication: Product used for unknown indication
     Dosage: 50 MG, QD
     Route: 065
     Dates: start: 202107

REACTIONS (7)
  - Road traffic accident [Unknown]
  - Upper limb fracture [Unknown]
  - Joint injury [Recovered/Resolved]
  - Limb injury [Recovered/Resolved]
  - Abdominal distension [Recovered/Resolved]
  - Arthritis [Recovering/Resolving]
  - Joint effusion [Recovering/Resolving]

NARRATIVE: CASE EVENT DATE: 20210401
